FAERS Safety Report 5220850-1 (Version None)
Quarter: 2007Q1

REPORT INFORMATION
  Report Type: 
  Country: None (occurrence: None)
  Receive Date: 20070126
  Receipt Date: 20070122
  Transmission Date: 20070707
  Serious: Yes (Death, Life-Threatening, Other)
  Sender: FDA-Public Use
  Company Number: JP-AVENTIS-200710062JP

PATIENT
  Sex: Female

DRUGS (1)
  1. ARAVA [Suspect]
     Route: 048

REACTIONS (4)
  - BRAIN DEATH [None]
  - DEATH [None]
  - PNEUMONIA [None]
  - RESPIRATORY ARREST [None]
